FAERS Safety Report 10075804 (Version 1)
Quarter: 2014Q2

REPORT INFORMATION
  Report Type: Spontaneous
  Country: DE (occurrence: DE)
  Receive Date: 20140414
  Receipt Date: 20140414
  Transmission Date: 20141212
  Serious: Yes (Other)
  Sender: FDA-Public Use
  Company Number: DE-JNJFOC-20140402587

PATIENT
  Sex: Female

DRUGS (10)
  1. RISPERIDONE [Suspect]
     Indication: PSYCHOTIC DISORDER
     Route: 065
  2. HALOPERIDOL [Suspect]
     Indication: PSYCHOTIC DISORDER
     Route: 065
  3. PROMETHAZINE [Suspect]
     Indication: PSYCHOTIC DISORDER
     Route: 065
  4. FLUPENTIXOL [Suspect]
     Indication: PSYCHOTIC DISORDER
     Route: 065
  5. ZOTEPINE [Suspect]
     Indication: PSYCHOTIC DISORDER
     Route: 065
  6. AMISULPRIDE [Suspect]
     Indication: PSYCHOTIC DISORDER
     Route: 065
  7. ZIPRASIDONE [Suspect]
     Indication: PSYCHOTIC DISORDER
     Route: 065
  8. CLOZAPINE [Suspect]
     Indication: PSYCHOTIC DISORDER
     Route: 065
  9. QUETIAPINE [Suspect]
     Indication: PSYCHOTIC DISORDER
     Route: 065
  10. OLANZAPINE [Suspect]
     Indication: PSYCHOTIC DISORDER
     Route: 065

REACTIONS (4)
  - Exposure during pregnancy [Recovered/Resolved]
  - Abortion spontaneous [Recovered/Resolved]
  - Stillbirth [Recovered/Resolved]
  - Premature baby [Not Recovered/Not Resolved]
